FAERS Safety Report 4916828-5 (Version None)
Quarter: 2006Q1

REPORT INFORMATION
  Report Type: 
  Country: None (occurrence: None)
  Receive Date: 20060216
  Receipt Date: 20060216
  Transmission Date: 20060701
  Serious: Yes (Life-Threatening)
  Sender: FDA-Public Use
  Company Number: None

PATIENT
  Sex: Female
  Weight: 64.4108 kg

DRUGS (1)
  1. GEODON [Suspect]
     Indication: TOURETTE'S DISORDER
     Dosage: 60MG 7WKS 80MG 4WKS 120MG 8 WK QHS PO
     Route: 048
     Dates: start: 20050803, end: 20060214

REACTIONS (7)
  - CONFUSIONAL STATE [None]
  - DIFFICULTY IN WALKING [None]
  - FALL [None]
  - NEUROLEPTIC MALIGNANT SYNDROME [None]
  - PARKINSONIAN GAIT [None]
  - POSTURE ABNORMAL [None]
  - SOMNOLENCE [None]
